FAERS Safety Report 8088465-8 (Version None)
Quarter: 2012Q1

REPORT INFORMATION
  Report Type: 
  Country: None (occurrence: None)
  Receive Date: 20120128
  Receipt Date: 20110417
  Transmission Date: 20120608
  Serious: No
  Sender: FDA-Public Use
  Company Number: US-ABBOTT-11P-163-0719866-00

PATIENT
  Sex: Male

DRUGS (1)
  1. HUMIRA [Suspect]
     Indication: CROHN'S DISEASE
     Dosage: LOADING DOSE GIVEN
     Route: 058
     Dates: start: 20110417

REACTIONS (3)
  - PRESYNCOPE [None]
  - HYPERHIDROSIS [None]
  - NAUSEA [None]
